FAERS Safety Report 13917863 (Version 2)
Quarter: 2019Q1

REPORT INFORMATION
  Report Type: Spontaneous
  Country: JP (occurrence: JP)
  Receive Date: 20170829
  Receipt Date: 20190213
  Transmission Date: 20190417
  Serious: Yes (Death, Hospitalization, Other)
  Sender: FDA-Public Use
  Company Number: JP-MYLANLABS-2017M1053930

PATIENT
  Age: 79 Year
  Sex: Male

DRUGS (1)
  1. CLARITHROMYCIN. [Suspect]
     Active Substance: CLARITHROMYCIN
     Indication: DIARRHOEA
     Route: 048

REACTIONS (5)
  - Diabetic ketoacidosis [Unknown]
  - Abdominal compartment syndrome [Fatal]
  - Pseudomembranous colitis [Fatal]
  - Septic shock [Fatal]
  - Klebsiella infection [Not Recovered/Not Resolved]
